FAERS Safety Report 4931020-6 (Version None)
Quarter: 2006Q1

REPORT INFORMATION
  Report Type: 
  Country: None (occurrence: None)
  Receive Date: 20060227
  Receipt Date: 20050824
  Transmission Date: 20060701
  Serious: Yes (Disabling)
  Sender: FDA-Public Use
  Company Number: 2005VX000506

PATIENT
  Age: 64 Year
  Sex: Female

DRUGS (4)
  1. PERMAX [Suspect]
     Indication: PARKINSON'S DISEASE
     Dosage: 6 MG;QD;PO
     Route: 048
     Dates: start: 20010515, end: 20041215
  2. MODOPAR [Concomitant]
  3. FOSAMAX [Concomitant]
  4. CALCIDOSE [Concomitant]

REACTIONS (5)
  - AORTIC VALVE DISEASE [None]
  - CARDIAC FAILURE [None]
  - CONDITION AGGRAVATED [None]
  - DYSPNOEA EXERTIONAL [None]
  - PULMONARY ARTERIAL PRESSURE INCREASED [None]
